FAERS Safety Report 15969618 (Version 2)
Quarter: 2021Q1

REPORT INFORMATION
  Report Type: Spontaneous
  Country: US (occurrence: US)
  Receive Date: 20190215
  Receipt Date: 20210318
  Transmission Date: 20210419
  Serious: Yes (Death, Other)
  Sender: FDA-Public Use
  Company Number: PHEH2019US006850

PATIENT
  Sex: Male

DRUGS (1)
  1. TASIGNA [Suspect]
     Active Substance: NILOTINIB
     Indication: CHRONIC MYELOID LEUKAEMIA
     Dosage: UNK, BID
     Route: 048
     Dates: start: 20090316, end: 201009

REACTIONS (19)
  - Pulmonary fibrosis [Unknown]
  - Hepatic lesion [Unknown]
  - Dyspnoea [Unknown]
  - Coronary artery disease [Unknown]
  - Fatigue [Unknown]
  - Chest pain [Unknown]
  - Emotional distress [Unknown]
  - Anxiety [Unknown]
  - Injury [Unknown]
  - Herpes zoster [Unknown]
  - Diarrhoea [Unknown]
  - Stenosis [Unknown]
  - Pain [Unknown]
  - Arteriosclerosis [Unknown]
  - Death [Fatal]
  - Myocardial infarction [Unknown]
  - Dysphoria [Unknown]
  - Hyperlipidaemia [Unknown]
  - Anaemia [Unknown]
